FAERS Safety Report 18386462 (Version 1)
Quarter: 2020Q4

REPORT INFORMATION
  Report Type: Spontaneous
  Country: US (occurrence: US)
  Receive Date: 20201014
  Receipt Date: 20201014
  Transmission Date: 20210114
  Serious: Yes (Other)
  Sender: FDA-Public Use
  Company Number: None

PATIENT
  Age: 25 Year
  Sex: Female
  Weight: 57.6 kg

DRUGS (11)
  1. MYDAYIS [Suspect]
     Active Substance: AMPHETAMINE ASPARTATE\AMPHETAMINE SULFATE\DEXTROAMPHETAMINE SACCHARATE\DEXTROAMPHETAMINE SULFATE
     Indication: ATTENTION DEFICIT HYPERACTIVITY DISORDER
     Dosage: ?          QUANTITY:1 CAPSULE(S);?
     Route: 048
     Dates: start: 20200828, end: 20200830
  2. FIBER SUPPLEMENT [Concomitant]
     Active Substance: DIETARY SUPPLEMENT
  3. TYLENOL/IBUPROFEN [Concomitant]
  4. ADDERALL [Suspect]
     Active Substance: AMPHETAMINE ASPARTATE\AMPHETAMINE SULFATE\DEXTROAMPHETAMINE SACCHARATE\DEXTROAMPHETAMINE SULFATE
  5. 5HTP [Concomitant]
  6. VITAMIN B12 [Concomitant]
     Active Substance: CYANOCOBALAMIN
  7. MAGNESIUM (INFREQUENT) [Concomitant]
  8. FISH OIL [Concomitant]
     Active Substance: FISH OIL
  9. WELLBUTRIN [Concomitant]
     Active Substance: BUPROPION HYDROCHLORIDE
  10. NEXPLANON [Concomitant]
     Active Substance: ETONOGESTREL
  11. IRON [Concomitant]
     Active Substance: IRON

REACTIONS (17)
  - Antisocial behaviour [None]
  - Presyncope [None]
  - Multi-organ disorder [None]
  - Muscular weakness [None]
  - Abdominal pain [None]
  - Hypertension [None]
  - Feeling abnormal [None]
  - Fear of disease [None]
  - Palpitations [None]
  - Vision blurred [None]
  - Dyspnoea [None]
  - Personality disorder [None]
  - Visual impairment [None]
  - Anxiety [None]
  - Tachycardia [None]
  - Chest pain [None]
  - Blood pressure systolic increased [None]

NARRATIVE: CASE EVENT DATE: 20200830
